FAERS Safety Report 7150066-3 (Version None)
Quarter: 2010Q4

REPORT INFORMATION
  Report Type: 
  Country: None (occurrence: None)
  Receive Date: 20101210
  Receipt Date: 20101206
  Transmission Date: 20110411
  Serious: No
  Sender: FDA-Public Use
  Company Number: US-PFIZER INC-2010166419

PATIENT
  Sex: Female
  Weight: 68.02 kg

DRUGS (7)
  1. CHANTIX [Suspect]
     Indication: SMOKING CESSATION THERAPY
     Dosage: 0.5 MG, 1X/DAY
     Route: 048
     Dates: start: 20101031
  2. PLAVIX [Concomitant]
     Dosage: UNK
  3. ACETYLSALICYLIC ACID [Concomitant]
     Dosage: 81 MG, UNK
  4. BACTRIM [Concomitant]
     Dosage: UNK
  5. RANITIDINE [Concomitant]
     Dosage: UNK
  6. TRAMADOL [Concomitant]
     Dosage: UNK
  7. CITALOPRAM [Concomitant]
     Dosage: UNK

REACTIONS (3)
  - ABNORMAL DREAMS [None]
  - NAUSEA [None]
  - VOMITING [None]
